FAERS Safety Report 18917169 (Version 1)
Quarter: 2021Q1

REPORT INFORMATION
  Report Type: Spontaneous
  Country: GB (occurrence: GB)
  Receive Date: 20210219
  Receipt Date: 20210219
  Transmission Date: 20210420
  Serious: Yes (Other)
  Sender: FDA-Public Use
  Company Number: GB-009507513-2102GBR007509

PATIENT
  Age: 22 Year
  Sex: Female
  Weight: 49.43 kg

DRUGS (2)
  1. RIGEVIDON [Concomitant]
  2. DIPROSONE [Suspect]
     Active Substance: BETAMETHASONE DIPROPIONATE
     Indication: ECZEMA
     Dosage: UNK
     Route: 061

REACTIONS (1)
  - Menstruation delayed [Not Recovered/Not Resolved]
